FAERS Safety Report 13183765 (Version 2)
Quarter: 2017Q1

REPORT INFORMATION
  Report Type: Report from Study
  Country: None (occurrence: CA)
  Receive Date: 20170203
  Receipt Date: 20170208
  Transmission Date: 20170428
  Serious: Yes (Other)
  Sender: FDA-Public Use
  Company Number: CA-ABBVIE-17P-028-1860125-00

PATIENT
  Age: 38 Year
  Sex: Male
  Weight: 86 kg

DRUGS (1)
  1. HUMIRA [Suspect]
     Active Substance: ADALIMUMAB
     Indication: CROHN^S DISEASE
     Route: 058
     Dates: start: 20140520

REACTIONS (8)
  - Pulmonary contusion [Unknown]
  - Vomiting [Recovered/Resolved]
  - Haematemesis [Recovered/Resolved]
  - Pleural effusion [Unknown]
  - Scoliosis [Unknown]
  - Intestinal anastomosis complication [Recovered/Resolved]
  - Splenomegaly [Unknown]
  - Intestinal obstruction [Recovered/Resolved]

NARRATIVE: CASE EVENT DATE: 20160822
